FAERS Safety Report 10418572 (Version 1)
Quarter: 2014Q2

REPORT INFORMATION
  Report Type: Spontaneous
  Country: US (occurrence: None)
  Receive Date: 20140609
  Receipt Date: 20140609
  Transmission Date: 20141212
  Serious: No
  Sender: FDA-Public Use
  Company Number: 2014TUS002284

PATIENT
  Age: 58 Year
  Sex: Male

DRUGS (2)
  1. BRINTELLIX [Suspect]
     Indication: MAJOR DEPRESSION
     Route: 048
     Dates: start: 2014, end: 2014
  2. WELLBUTRIN (BUPROPION HYDROCHLORIDE) [Concomitant]

REACTIONS (2)
  - Blood pressure increased [None]
  - Headache [None]
